FAERS Safety Report 7280597-7 (Version None)
Quarter: 2011Q1

REPORT INFORMATION
  Report Type: 
  Country: None (occurrence: None)
  Receive Date: 20110131
  Receipt Date: 20110114
  Transmission Date: 20110831
  Serious: Yes (Other)
  Sender: FDA-Public Use
  Company Number: AUR-APL-2011-00299

PATIENT
  Age: 78 Year
  Sex: Male

DRUGS (6)
  1. LIPITOR [Suspect]
     Indication: BLOOD CHOLESTEROL INCREASED
     Dosage: 20MG-DAILY-ORAL
     Route: 048
  2. ECOTRIN 81 MG [Concomitant]
  3. LISINOPRIL [Suspect]
     Indication: HYPERTENSION
     Dosage: 20MG-DAILY-
  4. DETROL [Suspect]
     Dosage: 4MG-DAILY-ORAL
     Route: 048
     Dates: start: 20110111
  5. MECLIZINE [Suspect]
     Indication: DIZZINESS
     Dosage: 25MG-DAILY
     Dates: start: 20080101
  6. ARICEPT [Suspect]
     Indication: DEMENTIA
     Dosage: 5MG-DAILY-ORAL
     Route: 048
     Dates: start: 20080101

REACTIONS (4)
  - PAIN [None]
  - DRUG INTERACTION [None]
  - ABNORMAL BEHAVIOUR [None]
  - HALLUCINATION [None]
